FAERS Safety Report 10427771 (Version 1)
Quarter: 2014Q3

REPORT INFORMATION
  Report Type: Spontaneous
  Country: DE (occurrence: DE)
  Receive Date: 20140903
  Receipt Date: 20140903
  Transmission Date: 20150326
  Serious: Yes (Other)
  Sender: FDA-Public Use
  Company Number: DE-ABBVIE-14P-062-1276196-00

PATIENT
  Sex: Male

DRUGS (2)
  1. STEROID [Suspect]
     Active Substance: UNSPECIFIED INGREDIENT
     Indication: NEPHROTIC SYNDROME
     Dosage: STANDARD STEROID THERAPY STARTED AT 25 MOS
  2. CYCLOSPORINE. [Suspect]
     Active Substance: CYCLOSPORINE
     Indication: NEPHROTIC SYNDROME
     Dosage: STARTED AT 28 MONTHS

REACTIONS (3)
  - Renal hypertension [Recovered/Resolved]
  - Renal impairment [Recovered/Resolved]
  - Nephrotic syndrome [Recovered/Resolved]
